FAERS Safety Report 9472201 (Version 1)
Quarter: 2013Q3

REPORT INFORMATION
  Report Type: Spontaneous
  Country: US (occurrence: None)
  Receive Date: 20130821
  Receipt Date: 20130821
  Transmission Date: 20140515
  Serious: Yes (Disabling)
  Sender: FDA-Public Use
  Company Number: None

PATIENT
  Age: 46 Year
  Sex: Female
  Weight: 45.81 kg

DRUGS (1)
  1. CIPROFLOXACIN [Suspect]
     Indication: URINARY TRACT INFECTION
     Route: 048
     Dates: start: 20130809, end: 20130813

REACTIONS (12)
  - Hypoaesthesia [None]
  - Skin discolouration [None]
  - Loose tooth [None]
  - Gingival pain [None]
  - Myalgia [None]
  - Insomnia [None]
  - Headache [None]
  - Visual impairment [None]
  - Muscular weakness [None]
  - Arthralgia [None]
  - Asthenia [None]
  - Abasia [None]
